FAERS Safety Report 9013800 (Version 1)
Quarter: 2013Q1

REPORT INFORMATION
  Report Type: Spontaneous
  Country: US (occurrence: US)
  Receive Date: 20130115
  Receipt Date: 20130115
  Transmission Date: 20140127
  Serious: No
  Sender: FDA-Public Use
  Company Number: US-MYLANLABS-2012S1022638

PATIENT
  Age: 66 Year
  Sex: Female

DRUGS (6)
  1. VALSARTAN AND HYDROCHLOROTHIAZIDE [Suspect]
     Indication: BLOOD PRESSURE INCREASED
     Route: 048
     Dates: start: 201210, end: 201211
  2. CITALOPRAM [Concomitant]
     Indication: ANXIETY
  3. SIMVASTATIN [Concomitant]
     Indication: BLOOD CHOLESTEROL INCREASED
  4. OMEPRAZOLE [Concomitant]
     Indication: GASTROOESOPHAGEAL REFLUX DISEASE
  5. VITAMIN [Concomitant]
  6. ASPIRIN [Concomitant]

REACTIONS (2)
  - Headache [Recovered/Resolved]
  - Insomnia [Recovered/Resolved]
